FAERS Safety Report 9059365 (Version 2)
Quarter: 2013Q1

REPORT INFORMATION
  Report Type: Spontaneous
  Country: US (occurrence: US)
  Receive Date: 20130211
  Receipt Date: 20130219
  Transmission Date: 20140127
  Serious: No
  Sender: FDA-Public Use
  Company Number: US-ASTRAZENECA-2013SE07103

PATIENT
  Age: 50 Year
  Sex: Female
  Weight: 69.9 kg

DRUGS (17)
  1. ZOMIG [Suspect]
     Route: 048
  2. MORPHINE [Suspect]
     Route: 065
  3. INDOMETHACIN [Concomitant]
     Route: 065
  4. IBUPROFEN [Concomitant]
     Route: 048
  5. IBUPROFEN [Concomitant]
     Route: 048
  6. RELPAX [Concomitant]
  7. ROBAXIN [Concomitant]
  8. TRIPTAFED [Concomitant]
  9. ZOFRAN [Concomitant]
  10. LYRICA [Concomitant]
     Indication: MIGRAINE
  11. REGLAN [Concomitant]
  12. MUSCLE RELAXANTS [Concomitant]
  13. SHARK CARTILAGE OIL [Concomitant]
     Route: 048
  14. SHARK CARTILAGE [Concomitant]
     Route: 048
  15. DIPHENHYDRAMINE HCL [Concomitant]
     Dosage: ONCE DAILY
     Route: 048
  16. TYLENOL [Concomitant]
  17. TYLENOL [Concomitant]
     Dosage: AS NEEDED

REACTIONS (4)
  - Dyspnoea [Unknown]
  - Drug abuse [Unknown]
  - Palpitations [Unknown]
  - Drug hypersensitivity [Unknown]
